FAERS Safety Report 5117197-0 (Version None)
Quarter: 2006Q3

REPORT INFORMATION
  Report Type: 
  Country: None (occurrence: None)
  Receive Date: 20060926
  Receipt Date: 20060913
  Transmission Date: 20061208
  Serious: Yes (Disabling, Other)
  Sender: FDA-Public Use
  Company Number: 2006111802

PATIENT
  Age: 55 Year
  Sex: Female

DRUGS (16)
  1. NEURONTIN [Suspect]
     Indication: NEURALGIA
     Dosage: 2700 MG (900 MG, 3 IN 1 D)
  2. LYRICA [Suspect]
     Indication: NEURALGIA
     Dosage: 150 MG (75 MG, 2 IN 1 D)
  3. GABAPENTIN [Suspect]
     Indication: NEURALGIA
     Dates: start: 20060101, end: 20060101
  4. FEXOFENADINE HCL [Concomitant]
  5. TOPROL-XL [Concomitant]
  6. DILTIAZEM [Concomitant]
  7. FOLIC ACID [Concomitant]
  8. LISINOPRIL [Concomitant]
  9. OMEPRAZOLE [Concomitant]
  10. EVISTA [Concomitant]
  11. ARICEPT [Concomitant]
  12. CARBAMAZEPINE [Concomitant]
  13. CYMBALTA [Concomitant]
  14. FUROSEMIDE [Concomitant]
  15. ACETYLSALICYLIC ACID (ACETYLSALIYCYLIC ACID) [Concomitant]
  16. POTASSIUM (POTASSIUM) [Concomitant]

REACTIONS (13)
  - BURNING SENSATION [None]
  - DEMENTIA ALZHEIMER'S TYPE [None]
  - DIABETES MELLITUS [None]
  - DISORIENTATION [None]
  - DRUG INEFFECTIVE [None]
  - DYSCALCULIA [None]
  - HYPOAESTHESIA [None]
  - INSOMNIA [None]
  - MEMORY IMPAIRMENT [None]
  - NEURALGIA [None]
  - PARAESTHESIA [None]
  - THERAPEUTIC RESPONSE UNEXPECTED WITH DRUG SUBSTITUTION [None]
  - WEIGHT INCREASED [None]
